FAERS Safety Report 5390754-2 (Version None)
Quarter: 2007Q3

REPORT INFORMATION
  Report Type: 
  Country: None (occurrence: None)
  Receive Date: 20070718
  Receipt Date: 20070706
  Transmission Date: 20080115
  Serious: Yes (Death, Hospitalization, Other)
  Sender: FDA-Public Use
  Company Number: CA-ELI_LILLY_AND_COMPANY-CA200707001987

PATIENT
  Age: 82 Year
  Sex: Female

DRUGS (8)
  1. FORTEO [Suspect]
     Indication: OSTEOPOROSIS
     Dosage: 20 UG, DAILY (1/D)
     Route: 058
     Dates: start: 20070223
  2. PRAVACHOL [Concomitant]
  3. TIMOLOL MALEATE [Concomitant]
  4. ALTACE [Concomitant]
  5. CENTRUM [Concomitant]
  6. CALCIUM CHLORIDE [Concomitant]
  7. VITAMIN D [Concomitant]
  8. ASPIRIN [Concomitant]

REACTIONS (3)
  - DEATH [None]
  - MYOCARDIAL INFARCTION [None]
  - PNEUMONIA [None]
